FAERS Safety Report 9738595 (Version 25)
Quarter: 2017Q1

REPORT INFORMATION
  Report Type: Report from Study
  Country: CA (occurrence: CA)
  Receive Date: 20131209
  Receipt Date: 20170324
  Transmission Date: 20170429
  Serious: Yes (Hospitalization, Other)
  Sender: FDA-Public Use
  Company Number: CA-ROCHE-1311564

PATIENT
  Age: 50 Year
  Sex: Female
  Weight: 103.6 kg

DRUGS (22)
  1. METHOTREXATE. [Suspect]
     Active Substance: METHOTREXATE
     Indication: RHEUMATOID ARTHRITIS
     Route: 048
  2. TYLENOL WITH CODEINE [Concomitant]
     Active Substance: ACETAMINOPHEN\CODEINE PHOSPHATE
  3. HYDROCHLOROTHIAZIDE. [Concomitant]
     Active Substance: HYDROCHLOROTHIAZIDE
  4. MORPHINE [Concomitant]
     Active Substance: MORPHINE
  5. FOLIC ACID. [Concomitant]
     Active Substance: FOLIC ACID
  6. METHYLPREDNISOLONE. [Concomitant]
     Active Substance: METHYLPREDNISOLONE
     Indication: PREMEDICATION
     Route: 042
     Dates: start: 20131115, end: 20161031
  7. VITAMIN B12 [Concomitant]
     Active Substance: CYANOCOBALAMIN
  8. DIPHENHYDRAMINE HCL [Concomitant]
     Active Substance: DIPHENHYDRAMINE HYDROCHLORIDE
     Indication: PREMEDICATION
     Route: 048
     Dates: start: 20131115, end: 20161031
  9. RAMIPRIL. [Concomitant]
     Active Substance: RAMIPRIL
  10. SULFASALAZINE. [Concomitant]
     Active Substance: SULFASALAZINE
  11. ACETAMINOPHEN. [Concomitant]
     Active Substance: ACETAMINOPHEN
     Indication: PREMEDICATION
     Route: 048
     Dates: start: 20131115, end: 20161031
  12. PREDNISONE. [Concomitant]
     Active Substance: PREDNISONE
     Indication: CATARACT OPERATION
     Route: 065
  13. RITUXAN [Suspect]
     Active Substance: RITUXIMAB
     Indication: RHEUMATOID ARTHRITIS
     Dosage: MOST RECENT DOSE ON 28/APR/2016
     Route: 042
     Dates: start: 20101005
  14. RITUXAN [Suspect]
     Active Substance: RITUXIMAB
     Dosage: RECENT DOSE: 10/DEC/2016
     Route: 042
     Dates: start: 20131115, end: 20161031
  15. ACTEMRA [Suspect]
     Active Substance: TOCILIZUMAB
     Indication: RHEUMATOID ARTHRITIS
     Route: 042
     Dates: start: 20170111
  16. CYCLOSPORIN [Suspect]
     Active Substance: CYCLOSPORINE
     Indication: PRODUCT USED FOR UNKNOWN INDICATION
     Route: 065
  17. ESCITALOPRAM [Concomitant]
     Active Substance: ESCITALOPRAM OXALATE
     Route: 065
     Dates: start: 20150503
  18. METHOTREXATE. [Suspect]
     Active Substance: METHOTREXATE
     Route: 058
  19. KADIAN [Concomitant]
     Active Substance: MORPHINE SULFATE
     Dosage: (SLOW RELEASE MORPHINE)
     Route: 065
  20. ZOPICLONE [Concomitant]
     Active Substance: ZOPICLONE
     Dosage: AT BEDTIME
     Route: 065
  21. DOMPERIDONE [Concomitant]
     Active Substance: DOMPERIDONE
     Route: 065
     Dates: start: 20150503
  22. RABEPRAZOLE [Concomitant]
     Active Substance: RABEPRAZOLE
     Route: 065

REACTIONS (50)
  - Neutrophil count decreased [Not Recovered/Not Resolved]
  - Feeling abnormal [Not Recovered/Not Resolved]
  - Corneal disorder [Unknown]
  - Rash erythematous [Not Recovered/Not Resolved]
  - Malaise [Not Recovered/Not Resolved]
  - Polyp [Unknown]
  - Gingival bleeding [Unknown]
  - Abdominal pain [Unknown]
  - Acute sinusitis [Unknown]
  - Pyrexia [Unknown]
  - Limb deformity [Not Recovered/Not Resolved]
  - Muscle spasticity [Unknown]
  - Neutropenia [Recovered/Resolved]
  - Hypotension [Unknown]
  - Feeling hot [Recovered/Resolved]
  - Tongue ulceration [Unknown]
  - Diarrhoea [Unknown]
  - Nausea [Unknown]
  - Rheumatoid arthritis [Unknown]
  - Herpes zoster [Not Recovered/Not Resolved]
  - Confusional state [Not Recovered/Not Resolved]
  - Nephrolithiasis [Unknown]
  - Candida infection [Unknown]
  - Fatigue [Not Recovered/Not Resolved]
  - Tooth fracture [Not Recovered/Not Resolved]
  - Ill-defined disorder [Unknown]
  - Balance disorder [Not Recovered/Not Resolved]
  - Anger [Not Recovered/Not Resolved]
  - Sjogren^s syndrome [Not Recovered/Not Resolved]
  - Oropharyngeal pain [Not Recovered/Not Resolved]
  - Hot flush [Unknown]
  - Thyroid disorder [Unknown]
  - Arthritis [Not Recovered/Not Resolved]
  - Inflammation [Unknown]
  - Abdominal pain upper [Unknown]
  - Epistaxis [Recovered/Resolved]
  - Cough [Not Recovered/Not Resolved]
  - Nasopharyngitis [Not Recovered/Not Resolved]
  - Gastric disorder [Unknown]
  - Rhinorrhoea [Not Recovered/Not Resolved]
  - Influenza [Not Recovered/Not Resolved]
  - Stomatitis [Unknown]
  - Rhinalgia [Not Recovered/Not Resolved]
  - Paranoia [Not Recovered/Not Resolved]
  - Cataract [Not Recovered/Not Resolved]
  - Weight increased [Unknown]
  - Cataract [Unknown]
  - Hepatic enzyme increased [Unknown]
  - Blood pressure fluctuation [Unknown]
  - Gingival bleeding [Recovering/Resolving]

NARRATIVE: CASE EVENT DATE: 201311
